FAERS Safety Report 5718571-1 (Version None)
Quarter: 2008Q2

REPORT INFORMATION
  Report Type: 
  Country: None (occurrence: None)
  Receive Date: 20080425
  Receipt Date: 20080415
  Transmission Date: 20081010
  Serious: Yes (Other)
  Sender: FDA-Public Use
  Company Number: NL-WYE-G01404108

PATIENT
  Age: 44 Year
  Sex: Male
  Weight: 75 kg

DRUGS (2)
  1. EFFEXOR XR [Suspect]
     Indication: NEURALGIA
     Dates: start: 20070301, end: 20080101
  2. EFFEXOR XR [Suspect]
     Dates: start: 20080101

REACTIONS (10)
  - AGGRESSION [None]
  - AGITATION [None]
  - DEPERSONALISATION [None]
  - DIZZINESS [None]
  - DRUG WITHDRAWAL SYNDROME [None]
  - FALL [None]
  - GAIT DISTURBANCE [None]
  - IMPULSE-CONTROL DISORDER [None]
  - LIBIDO DECREASED [None]
  - MEMORY IMPAIRMENT [None]
